FAERS Safety Report 25217765 (Version 1)
Quarter: 2025Q2

REPORT INFORMATION
  Report Type: Spontaneous
  Country: US (occurrence: US)
  Receive Date: 20250420
  Receipt Date: 20250420
  Transmission Date: 20250717
  Serious: No
  Sender: BEIGENE
  Company Number: US-BEIGENE-BGN-2025-006015

PATIENT

DRUGS (2)
  1. BRUKINSA [Suspect]
     Active Substance: ZANUBRUTINIB
     Indication: Marginal zone lymphoma
  2. BRUKINSA [Suspect]
     Active Substance: ZANUBRUTINIB

REACTIONS (2)
  - Dysphagia [Not Recovered/Not Resolved]
  - Product dose omission issue [Unknown]
